FAERS Safety Report 5498770-7 (Version None)
Quarter: 2007Q4

REPORT INFORMATION
  Report Type: 
  Country: None (occurrence: None)
  Receive Date: 20071026
  Receipt Date: 20070716
  Transmission Date: 20080405
  Serious: No
  Sender: FDA-Public Use
  Company Number: A0664326A

PATIENT
  Age: 80 Year
  Sex: Female

DRUGS (18)
  1. ADVAIR DISKUS 100/50 [Suspect]
     Indication: CHRONIC OBSTRUCTIVE PULMONARY DISEASE
     Dosage: 1PUFF TWICE PER DAY
     Route: 055
  2. TRIAMTERENE [Suspect]
     Indication: DRUG USE FOR UNKNOWN INDICATION
     Route: 065
  3. QVAR 40 [Concomitant]
     Dates: start: 20070301
  4. PROVENTIL [Concomitant]
  5. PROAIR HFA [Concomitant]
  6. DIOVAN [Concomitant]
  7. MUCINEX [Concomitant]
  8. ESTROPIPATE [Concomitant]
  9. OCUVITE [Concomitant]
  10. ASTELIN NOSE SPRAY [Concomitant]
  11. CRANBERRY [Concomitant]
  12. GINGER ROOT [Concomitant]
  13. SINGULAIR [Concomitant]
  14. GINSENG [Concomitant]
  15. CALCIUM CITRATE [Concomitant]
  16. TYLENOL (CAPLET) [Concomitant]
  17. LUTEIN [Concomitant]
  18. ZYRTEC [Concomitant]
     Indication: DRUG USE FOR UNKNOWN INDICATION

REACTIONS (5)
  - ASTHENIA [None]
  - CHEST DISCOMFORT [None]
  - DYSPNOEA [None]
  - MUSCULOSKELETAL PAIN [None]
  - NECK PAIN [None]
